FAERS Safety Report 8611663-9 (Version None)
Quarter: 2012Q3

REPORT INFORMATION
  Report Type: 
  Country: None (occurrence: None)
  Receive Date: 20120822
  Receipt Date: 20120816
  Transmission Date: 20120928
  Serious: No
  Sender: FDA-Public Use
  Company Number: US-PFIZER INC-2012201926

PATIENT
  Age: 83 Year
  Sex: Male
  Weight: 90.703 kg

DRUGS (4)
  1. ACETYLSALICYLIC ACID [Concomitant]
     Dosage: 81MG, DAILY
  2. GABAPENTIN [Suspect]
     Indication: NEUROPATHY PERIPHERAL
     Dosage: 300 MG, 1X/DAY
     Dates: start: 20120815, end: 20120816
  3. SIMVASTATIN [Concomitant]
     Dosage: 40MG, DAILY
  4. ENALAPRIL [Concomitant]
     Dosage: 20MG, DAILY

REACTIONS (1)
  - ENURESIS [None]
